FAERS Safety Report 24143010 (Version 1)
Quarter: 2024Q3

REPORT INFORMATION
  Report Type: Spontaneous
  Country: US (occurrence: None)
  Receive Date: 20240725
  Receipt Date: 20240725
  Transmission Date: 20241017
  Serious: Yes (Death)
  Sender: Public
  Company Number: None

PATIENT
  Age: 40 Year
  Sex: Male

DRUGS (2)
  1. TIVICAY [Suspect]
     Active Substance: DOLUTEGRAVIR SODIUM
     Indication: HIV infection
     Dosage: FREQUENCY : DAILY;?
     Route: 048
  2. PREZCOBIX [Suspect]
     Active Substance: COBICISTAT\DARUNAVIR ETHANOLATE
     Indication: HIV infection
     Dosage: OTHER QUANTITY : 800-150;?FREQUENCY : DAILY;?
     Route: 048
     Dates: start: 20211209

REACTIONS (1)
  - Death [None]

NARRATIVE: CASE EVENT DATE: 20240627
